FAERS Safety Report 5183113-9 (Version None)
Quarter: 2006Q4

REPORT INFORMATION
  Report Type: 
  Country: None (occurrence: None)
  Receive Date: 20061220
  Receipt Date: 20051215
  Transmission Date: 20070319
  Serious: No
  Sender: FDA-Public Use
  Company Number: US-GLAXOSMITHKLINE-A0586022A

PATIENT
  Age: 73 Year
  Sex: Female

DRUGS (2)
  1. NICODERM CQ [Suspect]
  2. NICODERM CQ [Suspect]

REACTIONS (7)
  - ABNORMAL DREAMS [None]
  - APPLICATION SITE SWELLING [None]
  - FEELING ABNORMAL [None]
  - INSOMNIA [None]
  - NAUSEA [None]
  - PALLOR [None]
  - VOMITING [None]
